FAERS Safety Report 5229900-X (Version None)
Quarter: 2007Q1

REPORT INFORMATION
  Report Type: 
  Country: None (occurrence: None)
  Receive Date: 20070206
  Receipt Date: 20061129
  Transmission Date: 20070707
  Serious: No
  Sender: FDA-Public Use
  Company Number: US-GLAXOSMITHKLINE-A0629453A

PATIENT
  Age: 89 Year
  Sex: Female

DRUGS (4)
  1. PAXIL [Suspect]
     Route: 048
     Dates: start: 20061001
  2. NORVASC [Concomitant]
  3. PROTONIX [Concomitant]
  4. DIOVAN [Concomitant]

REACTIONS (2)
  - ELECTROLYTE IMBALANCE [None]
  - HYPONATRAEMIA [None]
